FAERS Safety Report 5946027-X (Version None)
Quarter: 2008Q4

REPORT INFORMATION
  Report Type: 
  Country: None (occurrence: None)
  Receive Date: 20081106
  Receipt Date: 20081106
  Transmission Date: 20090506
  Serious: Yes (Hospitalization)
  Sender: FDA-Public Use
  Company Number: None

PATIENT
  Sex: Female
  Weight: 46.8 kg

DRUGS (20)
  1. TACROLIMUS [Suspect]
     Indication: LIVER TRANSPLANT
     Dosage: 5 MG EVERY 12 HOURS PO
     Route: 048
     Dates: start: 20080701, end: 20080819
  2. MULTI-VITAMIN [Concomitant]
  3. VITAMIN D [Concomitant]
  4. VITAMIN A [Concomitant]
  5. FOLIC ACID [Concomitant]
  6. TRAZODONE HCL [Concomitant]
  7. FUROSEMIDE [Concomitant]
  8. KEPPRA [Concomitant]
  9. VICODIN [Concomitant]
  10. CITALOPRAM HYDROBROMIDE [Concomitant]
  11. BACTRIM [Concomitant]
  12. LACTOBACILLUS [Concomitant]
  13. LOPERAMIDE HCL [Concomitant]
  14. MAGNESIUM OXIDE [Concomitant]
  15. MEGESTROL ACETATE [Concomitant]
  16. MYCOPHENOLATE MOFETIL [Concomitant]
  17. DELTASONE [Concomitant]
  18. ESOMEPRAZOLE MAGNESIUM [Concomitant]
  19. TESTOSTERONE [Concomitant]
  20. VALGANCICLOVIR [Concomitant]

REACTIONS (1)
  - REVERSIBLE POSTERIOR LEUKOENCEPHALOPATHY SYNDROME [None]
